FAERS Safety Report 9521226 (Version 1)
Quarter: 2013Q1

REPORT INFORMATION
  Report Type: Spontaneous
  Country: US (occurrence: None)
  Receive Date: 20130305
  Receipt Date: 20130305
  Transmission Date: 20140127
  Serious: Yes (Other)
  Sender: FDA-Public Use
  Company Number: 163-21880-11123840

PATIENT
  Sex: Male
  Weight: 83.92 kg

DRUGS (4)
  1. REVLIMID [Suspect]
     Indication: PLASMA CELL MYELOMA
     Dates: start: 20100209
  2. ASPIRIN(ACETYLSALICYLIC ACID) [Concomitant]
  3. XANAX(ALPRAZOLAM) [Concomitant]
  4. VITAMIN B12 [Concomitant]

REACTIONS (7)
  - Diarrhoea [None]
  - Nausea [None]
  - Feeling abnormal [None]
  - Neuropathy peripheral [None]
  - Influenza like illness [None]
  - Asthenia [None]
  - Headache [None]
